FAERS Safety Report 9681807 (Version 3)
Quarter: 2013Q4

REPORT INFORMATION
  Report Type: Spontaneous
  Country: FR (occurrence: FR)
  Receive Date: 20131111
  Receipt Date: 20131127
  Transmission Date: 20140711
  Serious: Yes (Hospitalization, Other)
  Sender: FDA-Public Use
  Company Number: FR-PFIZER INC-2013315683

PATIENT
  Age: 35 Year
  Sex: Female

DRUGS (5)
  1. SOLU-MEDROL [Suspect]
     Indication: PREMEDICATION
     Dosage: 60 MG, SINGLE
     Route: 042
     Dates: start: 20120724, end: 20120724
  2. TAXOTERE [Suspect]
     Indication: BREAST CANCER
     Dosage: 156 MG, SINGLE
     Route: 041
     Dates: start: 20120724, end: 20120724
  3. VOGALENE [Concomitant]
     Dosage: 4 DF, DAILY
     Route: 050
  4. TRIFLUCAN [Concomitant]
     Indication: MOUTH ULCERATION
     Dosage: 100 MG, DAILY
  5. PARIET [Concomitant]
     Dosage: UNK

REACTIONS (4)
  - Swelling face [Recovered/Resolved]
  - Respiratory disorder [Recovered/Resolved]
  - Pain [Recovered/Resolved]
  - Urticaria [Recovered/Resolved]
